FAERS Safety Report 22953456 (Version 4)
Quarter: 2024Q4

REPORT INFORMATION
  Report Type: Spontaneous
  Country: US (occurrence: US)
  Receive Date: 20230918
  Receipt Date: 20241119
  Transmission Date: 20250114
  Serious: Yes (Disabling)
  Sender: SANOFI AVENTIS
  Company Number: US-SA-SAC20230915000551

PATIENT
  Age: 51 Year
  Sex: Male

DRUGS (2)
  1. DUPIXENT [Suspect]
     Active Substance: DUPILUMAB
     Indication: Dermatitis atopic
     Dosage: 600 MG, 1X
     Route: 058
     Dates: start: 20230724, end: 20230724
  2. DUPIXENT [Suspect]
     Active Substance: DUPILUMAB
     Dosage: 300 MG, QOW
     Route: 058
     Dates: start: 202308

REACTIONS (10)
  - Loss of personal independence in daily activities [Unknown]
  - Emotional disorder [Unknown]
  - Affective disorder [Unknown]
  - Dermatitis contact [Unknown]
  - Eczema [Recovering/Resolving]
  - Pruritus [Unknown]
  - Rash [Unknown]
  - Product dose omission in error [Unknown]
  - Eye irritation [Unknown]
  - Dermatitis atopic [Recovered/Resolved]

NARRATIVE: CASE EVENT DATE: 20230101
